FAERS Safety Report 24445877 (Version 1)
Quarter: 2024Q4

REPORT INFORMATION
  Report Type: Spontaneous
  Country: EG (occurrence: EG)
  Receive Date: 20241016
  Receipt Date: 20241016
  Transmission Date: 20250115
  Serious: Yes (Hospitalization)
  Sender: ROCHE
  Company Number: EG-ROCHE-10000102747

PATIENT
  Age: 68 Year
  Sex: Male

DRUGS (2)
  1. MABTHERA [Suspect]
     Active Substance: RITUXIMAB
     Indication: Leukaemia
     Route: 065
     Dates: start: 20240702
  2. RIBOMUSTIN [Suspect]
     Active Substance: BENDAMUSTINE HYDROCHLORIDE
     Indication: Leukaemia
     Route: 065
     Dates: start: 20240702, end: 20240703

REACTIONS (4)
  - Hepatitis B [Unknown]
  - Jaundice [Unknown]
  - Hepatic enzyme increased [Unknown]
  - Back pain [Unknown]
